APPROVED DRUG PRODUCT: ETOPOSIDE
Active Ingredient: ETOPOSIDE
Strength: 20MG/ML
Dosage Form/Route: INJECTABLE;INJECTION
Application: A074968 | Product #001
Applicant: WATSON LABORATORIES INC
Approved: Jan 9, 1998 | RLD: No | RS: No | Type: DISCN